FAERS Safety Report 10287035 (Version 1)
Quarter: 2014Q3

REPORT INFORMATION
  Report Type: Spontaneous
  Country: GB (occurrence: None)
  Receive Date: 20140707
  Receipt Date: 20140707
  Transmission Date: 20150326
  Serious: Yes (Hospitalization, Other)
  Sender: FDA-Public Use
  Company Number: AUR-APL-2014-06896

PATIENT
  Age: 47 Year
  Sex: Male

DRUGS (7)
  1. METFORMIN HYDROCHLORIDE (METFORMIN HYDROCHLORIDE) [Concomitant]
     Active Substance: METFORMIN HYDROCHLORIDE
  2. INCIVO [Suspect]
     Active Substance: TELAPREVIR
     Indication: CHRONIC HEPATITIS C
     Route: 048
     Dates: start: 20131008, end: 20131108
  3. PEGASYS [Suspect]
     Active Substance: PEGINTERFERON ALFA-2A
     Indication: CHRONIC HEPATITIS C
     Dates: start: 20131008, end: 20140507
  4. RAMIPRIL. [Concomitant]
     Active Substance: RAMIPRIL
  5. RIBAVIRIN. [Suspect]
     Active Substance: RIBAVIRIN
     Indication: CHRONIC HEPATITIS C
     Dates: start: 20131008, end: 20131103
  6. SIMVASTATIN. [Concomitant]
     Active Substance: SIMVASTATIN
  7. SITAGLIPTIN [Concomitant]
     Active Substance: SITAGLIPTIN

REACTIONS (10)
  - Hepatic enzyme increased [None]
  - Malaise [None]
  - Nausea [None]
  - Aggression [None]
  - Pain [None]
  - Fatigue [None]
  - Impaired work ability [None]
  - Fat intolerance [None]
  - Inadequate diet [None]
  - Agitation [None]

NARRATIVE: CASE EVENT DATE: 2013
